FAERS Safety Report 9997650 (Version 1)
Quarter: 2014Q1

REPORT INFORMATION
  Report Type: Spontaneous
  Country: US (occurrence: None)
  Receive Date: 20140225
  Receipt Date: 20140225
  Transmission Date: 20141002
  Serious: Yes (Hospitalization)
  Sender: FDA-Public Use
  Company Number: 2013-150

PATIENT
  Age: 48 Year
  Sex: Female

DRUGS (7)
  1. PRIALT [Suspect]
     Indication: SPINAL PAIN
     Route: 037
     Dates: start: 20130208, end: 20130215
  2. PRIALT [Suspect]
     Indication: POST LAMINECTOMY SYNDROME
     Route: 037
     Dates: start: 20130208, end: 20130215
  3. PRIALT [Suspect]
     Indication: BACK PAIN
     Route: 037
     Dates: start: 20130208, end: 20130215
  4. OXYCONTIN (OXYCODONE HYDROCHLORIDE) [Concomitant]
  5. OXYCODONE HYDROCHLORIDE (OXYCODONE HYDROCHLORIDE) [Concomitant]
  6. DILAUDID (HYDROMORPHONE HYDROCHLORIDE) [Concomitant]
  7. LYRICA (PREGABALIN) [Concomitant]

REACTIONS (12)
  - Infection [None]
  - Weight decreased [None]
  - Sciatica [None]
  - Discomfort [None]
  - Oedema [None]
  - Urticaria [None]
  - Skin burning sensation [None]
  - Gait disturbance [None]
  - Pain [None]
  - Drug ineffective [None]
  - Burning sensation [None]
  - Device issue [None]
